FAERS Safety Report 20824834 (Version 1)
Quarter: 2022Q2

REPORT INFORMATION
  Report Type: Spontaneous
  Country: US (occurrence: None)
  Receive Date: 20220513
  Receipt Date: 20220513
  Transmission Date: 20220721
  Serious: Yes (Hospitalization)
  Sender: FDA-Public Use
  Company Number: US-Hikma Pharmaceuticals USA Inc.-US-H14001-20-05486

PATIENT
  Age: 46 Year
  Sex: Female
  Weight: 50.9 kg

DRUGS (5)
  1. PREDNISONE [Suspect]
     Active Substance: PREDNISONE
     Indication: Chronic graft versus host disease
     Dosage: 40/10 MG, QD (EVERY DAY)
     Route: 048
     Dates: start: 20200901, end: 20200918
  2. PREDNISONE [Suspect]
     Active Substance: PREDNISONE
     Dosage: 40/20 MG, QOD (EVERY OTHER DAY)
     Route: 048
     Dates: start: 20200919, end: 20201002
  3. PREDNISONE [Suspect]
     Active Substance: PREDNISONE
     Dosage: 40/10 MG, QOD (EVERY OTHER DAY)
     Route: 048
     Dates: start: 20201003
  4. ITACITINIB [Suspect]
     Active Substance: ITACITINIB
     Indication: Chronic graft versus host disease
     Route: 048
     Dates: start: 20200903, end: 20201023
  5. VALACYCLOVIR HYDROCHLORIDE [Concomitant]
     Active Substance: VALACYCLOVIR HYDROCHLORIDE
     Indication: Product used for unknown indication
     Route: 065
     Dates: start: 20200924

REACTIONS (1)
  - Herpes zoster cutaneous disseminated [Recovered/Resolved]

NARRATIVE: CASE EVENT DATE: 20201022
